FAERS Safety Report 25682831 (Version 4)
Quarter: 2025Q3

REPORT INFORMATION
  Report Type: Spontaneous
  Country: BR (occurrence: BR)
  Receive Date: 20250814
  Receipt Date: 20250918
  Transmission Date: 20251020
  Serious: Yes (Other)
  Sender: INCYTE
  Company Number: BR-002147023-NVSC2025BR094659

PATIENT
  Age: 40 Year

DRUGS (10)
  1. RUXOLITINIB [Suspect]
     Active Substance: RUXOLITINIB
     Indication: Primary myelofibrosis
     Dosage: 2 DOSAGE FORM, QD, (WITH 60 TABLETS)
     Route: 065
  2. RUXOLITINIB [Suspect]
     Active Substance: RUXOLITINIB
     Dosage: 1 DOSAGE FORM, QD
  3. RUXOLITINIB [Suspect]
     Active Substance: RUXOLITINIB
     Dosage: 10 MG, BID
     Route: 065
  4. RUXOLITINIB [Suspect]
     Active Substance: RUXOLITINIB
     Dosage: 5 MG (5MG  TABLET  WITH  ALUMINIU M BLISTER  AND  TRANSPAR ENT  PLASTIC X  60)
     Route: 065
  5. RUXOLITINIB [Suspect]
     Active Substance: RUXOLITINIB
     Dosage: 2 DOSAGE FORM, QD, JAKAVI 5MG  C 60 COMP
     Route: 065
  6. RUXOLITINIB [Suspect]
     Active Substance: RUXOLITINIB
     Dosage: 4 DOSAGE FORM, QD
     Route: 065
  7. HYDROXYCHLOROQUINE SULFATE [Concomitant]
     Active Substance: HYDROXYCHLOROQUINE SULFATE
     Indication: Systemic lupus erythematosus
     Dosage: 1 DOSAGE FORM, QD (STARTED 25 YEARS AGO)
  8. EUTHYROX [Concomitant]
     Active Substance: LEVOTHYROXINE SODIUM
     Indication: Hypothyroidism
     Dosage: 1 DOSAGE FORM, QD, (IN THE MORNING) (STARTED 25 YEARS AGO)
  9. GLIFAGE [METFORMIN HYDROCHLORIDE] [Concomitant]
     Indication: Diabetes mellitus
     Dosage: 1 DOSAGE FORM, BID, (1 TABLET AT LUNCH AND 1 TABLET AT DINNER)
  10. LEVOTHYROXINE SODIUM [Concomitant]
     Active Substance: LEVOTHYROXINE SODIUM
     Indication: Product used for unknown indication
     Route: 065

REACTIONS (10)
  - Haemorrhage [Not Recovered/Not Resolved]
  - Haemorrhage [Recovered/Resolved]
  - Condition aggravated [Unknown]
  - Myelofibrosis [Recovered/Resolved]
  - Drug ineffective [Recovering/Resolving]
  - Hyperthyroidism [Unknown]
  - Alanine aminotransferase increased [Recovered/Resolved]
  - Diarrhoea [Recovered/Resolved]
  - Feeding disorder [Recovered/Resolved]
  - Viral infection [Recovered/Resolved]
